FAERS Safety Report 9937648 (Version 3)
Quarter: 2015Q2

REPORT INFORMATION
  Report Type: Spontaneous
  Country: US (occurrence: US)
  Receive Date: 20140303
  Receipt Date: 20150602
  Transmission Date: 20150821
  Serious: No
  Sender: FDA-Public Use
  Company Number: US-BIOGENIDEC-2014BI002694

PATIENT
  Age: 54 Year
  Sex: Female

DRUGS (8)
  1. COQ10 [Concomitant]
     Active Substance: UBIDECARENONE
  2. LEXAPRO [Concomitant]
     Active Substance: ESCITALOPRAM OXALATE
  3. TECFIDERA [Suspect]
     Active Substance: DIMETHYL FUMARATE
     Indication: MULTIPLE SCLEROSIS
     Route: 048
     Dates: start: 20131016
  4. TEMAZEPAM. [Concomitant]
     Active Substance: TEMAZEPAM
  5. TECFIDERA [Suspect]
     Active Substance: DIMETHYL FUMARATE
     Indication: MULTIPLE SCLEROSIS
     Route: 048
     Dates: start: 20140204
  6. PROVIGIL [Concomitant]
     Active Substance: MODAFINIL
  7. MELOXICAM. [Concomitant]
     Active Substance: MELOXICAM
  8. VITAMIN D [Concomitant]
     Active Substance: CHOLECALCIFEROL

REACTIONS (4)
  - Multiple sclerosis relapse [Unknown]
  - Flushing [Not Recovered/Not Resolved]
  - Constipation [Unknown]
  - Weight decreased [Unknown]
